FAERS Safety Report 14557461 (Version 1)
Quarter: 2018Q1

REPORT INFORMATION
  Report Type: Spontaneous
  Country: US (occurrence: US)
  Receive Date: 20180221
  Receipt Date: 20180221
  Transmission Date: 20180509
  Serious: No
  Sender: FDA-Public Use
  Company Number: US-IPSEN BIOPHARMACEUTICALS, INC.-2017-09214

PATIENT
  Sex: Female

DRUGS (4)
  1. DYSPORT [Suspect]
     Active Substance: ABOBOTULINUMTOXINA
     Indication: SKIN WRINKLING
     Dosage: 78 UNITS
     Route: 065
     Dates: start: 20170509, end: 20170509
  2. DYSPORT [Suspect]
     Active Substance: ABOBOTULINUMTOXINA
     Indication: SKIN WRINKLING
  3. DYSPORT [Suspect]
     Active Substance: ABOBOTULINUMTOXINA
     Indication: SKIN WRINKLING
     Dosage: 210-220 UNITS
     Route: 065
     Dates: start: 20170503, end: 20170503
  4. DYSPORT [Suspect]
     Active Substance: ABOBOTULINUMTOXINA
     Indication: OFF LABEL USE

REACTIONS (8)
  - Muscular weakness [Not Recovered/Not Resolved]
  - Crying [Unknown]
  - Drug ineffective [Unknown]
  - Inappropriate schedule of drug administration [Unknown]
  - Wrong technique in product usage process [Unknown]
  - Discomfort [Unknown]
  - Product preparation error [Unknown]
  - Off label use [Unknown]

NARRATIVE: CASE EVENT DATE: 20170503
